FAERS Safety Report 9016682 (Version 1)
Quarter: 2013Q1

REPORT INFORMATION
  Report Type: Report from Study
  Country: BE (occurrence: BE)
  Receive Date: 20130116
  Receipt Date: 20130116
  Transmission Date: 20140127
  Serious: Yes (Other)
  Sender: FDA-Public Use
  Company Number: BE-ROCHE-1179002

PATIENT
  Sex: Male

DRUGS (2)
  1. VEMURAFENIB [Suspect]
     Indication: PRODUCT USED FOR UNKNOWN INDICATION
     Route: 065
     Dates: start: 20121207
  2. VEMURAFENIB [Suspect]
     Route: 065

REACTIONS (8)
  - Asthenia [Unknown]
  - Arthralgia [Unknown]
  - Eye pain [Unknown]
  - Dysgeusia [Unknown]
  - Insomnia [Unknown]
  - Skin reaction [Unknown]
  - Decreased appetite [Unknown]
  - Blood creatinine increased [Unknown]
